FAERS Safety Report 4558647-8 (Version None)
Quarter: 2005Q1

REPORT INFORMATION
  Report Type: 
  Country: None (occurrence: None)
  Receive Date: 20050121
  Receipt Date: 20041125
  Transmission Date: 20050727
  Serious: Yes (Hospitalization)
  Sender: FDA-Public Use
  Company Number: DE-BRISTOL-MYERS SQUIBB COMPANY-12783411

PATIENT
  Age: 67 Year
  Sex: Female
  Weight: 82 kg

DRUGS (2)
  1. ENDOXAN [Suspect]
     Indication: BREAST CANCER
     Dosage: 1170 MG ON 02-NOV-2004 1150 MG ON 14-DEC-2004
     Route: 042
     Dates: start: 20041025, end: 20041025
  2. FARMORUBICIN [Suspect]
     Indication: BREAST CANCER
     Dosage: 175 MG ON 02-NOV-2004 170 MG ON 14-DEC-2004
     Route: 042
     Dates: start: 20041025, end: 20041025

REACTIONS (2)
  - PYREXIA [None]
  - SKIN INFECTION [None]
